FAERS Safety Report 5035893-0 (Version None)
Quarter: 2006Q2

REPORT INFORMATION
  Report Type: 
  Country: None (occurrence: None)
  Receive Date: 20060526
  Receipt Date: 20060425
  Transmission Date: 20061013
  Serious: Yes (Hospitalization)
  Sender: FDA-Public Use
  Company Number: 224037

PATIENT
  Age: 41 Year
  Sex: Male

DRUGS (4)
  1. RAPTIVA [Suspect]
     Indication: PSORIASIS
     Dosage: 1 MG/KG
     Dates: start: 20040104
  2. ZOLOFT [Concomitant]
  3. XANAX [Concomitant]
  4. SORIATANE [Concomitant]

REACTIONS (2)
  - ARTHRITIS [None]
  - PNEUMONIA [None]
